FAERS Safety Report 23036165 (Version 2)
Quarter: 2023Q4

REPORT INFORMATION
  Report Type: Other
  Country: SK (occurrence: SK)
  Receive Date: 20231006
  Receipt Date: 20231016
  Transmission Date: 20240110
  Serious: Yes (Hospitalization)
  Sender: FDA-Public Use
  Company Number: SK-CELLTRION HEALTHCARE HUNGARY KFT-2023SK018407

PATIENT
  Age: 42 Year
  Sex: Female

DRUGS (10)
  1. RITUXIMAB [Suspect]
     Active Substance: RITUXIMAB
     Indication: Product used for unknown indication
     Dosage: THE LAST DOSE ADMINISTERED SIX MONTHS AGO
     Route: 041
  2. UNSPECIFIED INGREDIENT [Suspect]
     Active Substance: UNSPECIFIED INGREDIENT
     Indication: Product used for unknown indication
     Dosage: IN A PROPHYLACTIC DOSE
     Route: 065
  3. BARICITINIB [Suspect]
     Active Substance: BARICITINIB
     Indication: Product used for unknown indication
     Route: 065
  4. REMDESIVIR [Suspect]
     Active Substance: REMDESIVIR
     Indication: Product used for unknown indication
     Dosage: ADMINISTERED FOR 10 DAYS
     Route: 065
  5. DEXAMETHASONE [Suspect]
     Active Substance: DEXAMETHASONE
     Indication: Product used for unknown indication
     Route: 065
  6. PREDNISONE [Suspect]
     Active Substance: PREDNISONE
     Indication: Product used for unknown indication
     Route: 065
  7. AZOXIMER BROMIDE [Suspect]
     Active Substance: AZOXIMER BROMIDE
     Indication: Product used for unknown indication
     Route: 065
  8. PROBIOTICS NOS [Concomitant]
     Active Substance: PROBIOTICS NOS
  9. MOXIFLOXACIN [Concomitant]
     Active Substance: MOXIFLOXACIN
     Dosage: NON-TARGETED 2-COMBINATION ATB THERAPY (CEFOTAXIME + MOXIFLOXACIN) (INITIATED FROM THE BEGINNING OF
  10. CEFOTAXIME [Concomitant]
     Active Substance: CEFOTAXIME SODIUM
     Dosage: NON-TARGETED 2-COMBINATION ATB THERAPY (CEFOTAXIME + MOXIFLOXACIN) (INITIATED FROM THE BEGINNING OF

REACTIONS (6)
  - Pneumonia [Unknown]
  - Immunodeficiency [Recovering/Resolving]
  - Pyrexia [Unknown]
  - COVID-19 [Recovered/Resolved]
  - B-lymphocyte count decreased [Recovering/Resolving]
  - COVID-19 pneumonia [Recovering/Resolving]
